FAERS Safety Report 5595716-8 (Version None)
Quarter: 2008Q1

REPORT INFORMATION
  Report Type: 
  Country: None (occurrence: None)
  Receive Date: 20080118
  Receipt Date: 20080109
  Transmission Date: 20080703
  Serious: Yes (Hospitalization)
  Sender: FDA-Public Use
  Company Number: US-ABBOTT-08P-163-0433026-00

PATIENT
  Sex: Female
  Weight: 70.37 kg

DRUGS (1)
  1. ERYTHROCIN STEARATE 500MG [Suspect]
     Indication: ANTIBIOTIC PROPHYLAXIS
     Dosage: 4 TABLETS (500 MG) PRIOR TO DENTAL PROCEDURE
     Route: 048
     Dates: start: 20080104, end: 20080104

REACTIONS (7)
  - ABDOMINAL PAIN [None]
  - CHEST PAIN [None]
  - DIZZINESS [None]
  - GASTRIC INFECTION [None]
  - NAUSEA [None]
  - PANCREATITIS [None]
  - VOMITING [None]
